FAERS Safety Report 10449547 (Version 2)
Quarter: 2014Q4

REPORT INFORMATION
  Report Type: Spontaneous
  Country: US (occurrence: US)
  Receive Date: 20140912
  Receipt Date: 20141020
  Transmission Date: 20150528
  Serious: Yes (Hospitalization)
  Sender: FDA-Public Use
  Company Number: US-RECKITT BENCKISER PHARMACEUTICAL, INC-RB-71313-2014

PATIENT
  Age: 39 Year
  Sex: Male

DRUGS (9)
  1. TEGRETOL [Concomitant]
     Active Substance: CARBAMAZEPINE
     Indication: SEIZURE
     Dosage: UNK
     Route: 065
  2. SUBOXONE [Suspect]
     Active Substance: BUPRENORPHINE HYDROCHLORIDE\NALOXONE HYDROCHLORIDE
     Indication: BRAIN NEOPLASM
     Dosage: UNK
     Route: 065
  3. BUPRENORPHINE GENERIC TAB [Suspect]
     Active Substance: BUPRENORPHINE
     Indication: BRAIN NEOPLASM
     Dosage: SINCE 7 YEARS AND TAKES VERY LITTLE DOSE OF IT AND CUTS IT IN ORDER TO ACHIEVE DOSING
     Route: 060
  4. BUPRENORPHINE GENERIC TAB [Suspect]
     Active Substance: BUPRENORPHINE
     Indication: SEIZURE
  5. SUBUTEX [Suspect]
     Active Substance: BUPRENORPHINE HYDROCHLORIDE
     Indication: DRUG DEPENDENCE
     Dosage: VERY LESS DOSE, UNK
     Route: 060
  6. SUBUTEX [Suspect]
     Active Substance: BUPRENORPHINE HYDROCHLORIDE
     Indication: PAIN
  7. SUBOXONE [Suspect]
     Active Substance: BUPRENORPHINE HYDROCHLORIDE\NALOXONE HYDROCHLORIDE
     Indication: SEIZURE
  8. BUPRENORPHINE GENERIC TAB [Suspect]
     Active Substance: BUPRENORPHINE
     Indication: PAIN
  9. GABAPENTIN. [Concomitant]
     Active Substance: GABAPENTIN
     Indication: SEIZURE
     Dosage: 200MG, TWICE DAILY
     Route: 065

REACTIONS (5)
  - Hepatomegaly [Recovered/Resolved]
  - Off label use [Recovered/Resolved]
  - Wrong technique in drug usage process [Unknown]
  - Intentional underdose [Unknown]
  - Hepatitis C [Recovered/Resolved]
